FAERS Safety Report 16473716 (Version 2)
Quarter: 2019Q3

REPORT INFORMATION
  Report Type: Spontaneous
  Country: TR (occurrence: TR)
  Receive Date: 20190625
  Receipt Date: 20190724
  Transmission Date: 20191004
  Serious: Yes (Hospitalization, Other)
  Sender: FDA-Public Use
  Company Number: TR-PFIZER INC-2019264569

PATIENT
  Sex: Male

DRUGS (5)
  1. XANAX [Suspect]
     Active Substance: ALPRAZOLAM
     Indication: OBSESSIVE THOUGHTS
     Dosage: 1 MG, 2X/DAY
  2. XANAX [Suspect]
     Active Substance: ALPRAZOLAM
     Dosage: 5-6 TIMES, DAILY
  3. XANAX [Suspect]
     Active Substance: ALPRAZOLAM
     Dosage: 1 MG, UNK (8-9 TIMES DAILIY)
     Route: 048
  4. CIPRAM [Concomitant]
     Active Substance: CITALOPRAM HYDROBROMIDE
     Dosage: UNK UNK, 1X/DAY
  5. XANAX [Suspect]
     Active Substance: ALPRAZOLAM
     Dosage: 0.5 MG, UNK

REACTIONS (10)
  - Drug dependence [Unknown]
  - Fear [Recovered/Resolved]
  - Product use in unapproved indication [Unknown]
  - Dependence [Not Recovered/Not Resolved]
  - Hyperhidrosis [Recovered/Resolved]
  - Withdrawal syndrome [Recovered/Resolved]
  - Off label use [Unknown]
  - Suicidal ideation [Recovered/Resolved]
  - Panic reaction [Recovered/Resolved]
  - Intentional product use issue [Not Recovered/Not Resolved]
